FAERS Safety Report 11455563 (Version 1)
Quarter: 2015Q3

REPORT INFORMATION
  Report Type: Spontaneous
  Country: US (occurrence: US)
  Receive Date: 20150903
  Receipt Date: 20150903
  Transmission Date: 20151125
  Serious: No
  Sender: FDA-Public Use
  Company Number: US-BEH-2014043685

PATIENT
  Sex: Male
  Weight: 63 kg

DRUGS (21)
  1. NORMAL SALINE [Concomitant]
     Active Substance: SODIUM CHLORIDE
  2. AZITHROMYCIN [Concomitant]
     Active Substance: AZITHROMYCIN ANHYDROUS
  3. DIPHENHYDRAMINE. [Concomitant]
     Active Substance: DIPHENHYDRAMINE
  4. EPIPEN [Concomitant]
     Active Substance: EPINEPHRINE
  5. ZEMAIRA [Suspect]
     Active Substance: .ALPHA.1-PROTEINASE INHIBITOR HUMAN
     Indication: ALPHA-1 ANTI-TRYPSIN DEFICIENCY
     Dosage: 1024 MG/VIAL
     Route: 042
  6. PROPANOLOL [Concomitant]
     Active Substance: PROPRANOLOL HYDROCHLORIDE
  7. ADVAIR HFA [Concomitant]
     Active Substance: FLUTICASONE PROPIONATE\SALMETEROL XINAFOATE
  8. VITAMIN D3 [Concomitant]
     Active Substance: CHOLECALCIFEROL
  9. IBUPROFEN. [Concomitant]
     Active Substance: IBUPROFEN
  10. SODIUM CHLORIDE. [Concomitant]
     Active Substance: SODIUM CHLORIDE
  11. PROAIR HFA [Concomitant]
     Active Substance: ALBUTEROL SULFATE
  12. PRAZOSIN [Concomitant]
     Active Substance: PRAZOSIN
  13. LMX [Concomitant]
     Active Substance: LIDOCAINE
  14. OXYCODONE [Concomitant]
     Active Substance: OXYCODONE
  15. ALL OTHER THERAPEUTIC PRODUCTS [Concomitant]
     Active Substance: UNSPECIFIED INGREDIENT
  16. HEPARIN [Concomitant]
     Active Substance: HEPARIN SODIUM
  17. SEROQUEL [Concomitant]
     Active Substance: QUETIAPINE FUMARATE
  18. GABAPENTIN. [Concomitant]
     Active Substance: GABAPENTIN
  19. SPIRIVA [Concomitant]
     Active Substance: TIOTROPIUM BROMIDE MONOHYDRATE
  20. ATROVENT [Concomitant]
     Active Substance: IPRATROPIUM BROMIDE
  21. PREDNISONE. [Concomitant]
     Active Substance: PREDNISONE

REACTIONS (2)
  - Vomiting [Unknown]
  - Pyrexia [Unknown]
